FAERS Safety Report 7898913-1 (Version None)
Quarter: 2011Q4

REPORT INFORMATION
  Report Type: 
  Country: None (occurrence: None)
  Receive Date: 20111107
  Receipt Date: 20111011
  Transmission Date: 20120403
  Serious: Yes (Hospitalization)
  Sender: FDA-Public Use
  Company Number: US-ABBOTT-11P-163-0864231-00

PATIENT
  Age: 53 Year
  Sex: Male
  Weight: 79.45 kg

DRUGS (2)
  1. LUPRON DEPOT [Suspect]
     Indication: HORMONE LEVEL ABNORMAL
     Dosage: UNKNOWN DOSE, BUT GIVEN 2 DOSES WITHIN A 30 DAY PERIOD
     Route: 050
     Dates: start: 20110801
  2. UNKNOWN OTHER MEDICATIONS [Concomitant]
     Indication: PRODUCT USED FOR UNKNOWN INDICATION

REACTIONS (4)
  - HEAD INJURY [None]
  - FALL [None]
  - CONVULSION [None]
  - LACERATION [None]
